FAERS Safety Report 17804373 (Version 1)
Quarter: 2020Q2

REPORT INFORMATION
  Report Type: Spontaneous
  Country: DE (occurrence: DE)
  Receive Date: 20200519
  Receipt Date: 20200519
  Transmission Date: 20200714
  Serious: Yes (Death, Hospitalization)
  Sender: FDA-Public Use
  Company Number: DE-MYLANLABS-2020M1049966

PATIENT
  Age: 38 Year
  Sex: Female

DRUGS (3)
  1. FENTANYL. [Suspect]
     Active Substance: FENTANYL
     Indication: PRODUCT USED FOR UNKNOWN INDICATION
     Dosage: 23 FENTANYL PATCHES ADHERED TO SKIN, WHICH WERE CORRESPONDED TO A CUMULATIVE DOSE OF 419 MCG/H
     Route: 061
  2. METOPROLOL. [Suspect]
     Active Substance: METOPROLOL
     Indication: HYPERTENSION
     Dosage: TOTAL CUMULATIVE DOSE OF 10.5G
     Route: 065
  3. LORAZEPAM. [Suspect]
     Active Substance: LORAZEPAM
     Indication: PRODUCT USED FOR UNKNOWN INDICATION
     Dosage: TOTAL CUMULATIVE DOSE OF 10.5 G METOPROLOL SUCCINATE
     Route: 065

REACTIONS (17)
  - Intentional overdose [Fatal]
  - Metabolic acidosis [Fatal]
  - Vasoconstriction [Fatal]
  - Bundle branch block left [Fatal]
  - Acute myocardial infarction [Fatal]
  - Coronary artery occlusion [Fatal]
  - Suicide attempt [Fatal]
  - Toxicity to various agents [Fatal]
  - Ventricular tachycardia [Fatal]
  - Embolic cerebral infarction [Fatal]
  - Cerebral ischaemia [Fatal]
  - Blood glucose increased [Unknown]
  - Coma [Fatal]
  - Respiratory failure [Fatal]
  - Cardiac arrest [Fatal]
  - Circulatory collapse [Fatal]
  - Hyperkalaemia [Recovering/Resolving]
